FAERS Safety Report 9838299 (Version 2)
Quarter: 2014Q1

REPORT INFORMATION
  Report Type: Spontaneous
  Country: JP (occurrence: JP)
  Receive Date: 20140123
  Receipt Date: 20140123
  Transmission Date: 20141002
  Serious: Yes (Hospitalization)
  Sender: FDA-Public Use
  Company Number: JP-UCBSA-108539

PATIENT
  Age: 11 Year
  Sex: Male
  Weight: 35 kg

DRUGS (3)
  1. E KEPPRA [Suspect]
     Indication: EPILEPSY
     Route: 048
     Dates: start: 20130105
  2. LEVOMEPROMAZINE [Suspect]
     Route: 048
     Dates: start: 201308
  3. ZONISAMIDE [Concomitant]
     Route: 048
     Dates: start: 2013

REACTIONS (2)
  - Pyrexia [Recovered/Resolved]
  - Hepatic function abnormal [Unknown]
